FAERS Safety Report 14260571 (Version 2)
Quarter: 2017Q4

REPORT INFORMATION
  Report Type: Spontaneous
  Country: JP (occurrence: JP)
  Receive Date: 20171207
  Receipt Date: 20171214
  Transmission Date: 20180321
  Serious: Yes (Hospitalization, Other)
  Sender: FDA-Public Use
  Company Number: JP-GILEAD-2017-0308266

PATIENT
  Age: 86 Year
  Sex: Female

DRUGS (1)
  1. HARVONI [Suspect]
     Active Substance: LEDIPASVIR\SOFOSBUVIR
     Indication: CHRONIC HEPATITIS C
     Dosage: 1 DF, QD
     Route: 048
     Dates: start: 20170406, end: 20170628

REACTIONS (6)
  - Blood glucose increased [Unknown]
  - Glucose urine present [Not Recovered/Not Resolved]
  - Pancreatitis acute [Unknown]
  - Fulminant type 1 diabetes mellitus [Unknown]
  - Glycosylated haemoglobin increased [Not Recovered/Not Resolved]
  - C-reactive protein increased [Unknown]

NARRATIVE: CASE EVENT DATE: 20170803
